FAERS Safety Report 5294475-6 (Version None)
Quarter: 2007Q2

REPORT INFORMATION
  Report Type: 
  Country: None (occurrence: None)
  Receive Date: 20070412
  Receipt Date: 20070328
  Transmission Date: 20071010
  Serious: Yes (Death)
  Sender: FDA-Public Use
  Company Number: US-AMGEN-STX198947

PATIENT
  Sex: Male

DRUGS (5)
  1. ENBREL [Suspect]
     Indication: PSORIATIC ARTHROPATHY
     Dates: start: 20030429
  2. KLONOPIN [Concomitant]
     Route: 065
  3. ULTRAM [Concomitant]
     Route: 065
  4. SEROQUEL [Concomitant]
     Route: 065
  5. LOTENSIN [Concomitant]
     Route: 065

REACTIONS (1)
  - DEATH [None]
